FAERS Safety Report 25543966 (Version 2)
Quarter: 2025Q4

REPORT INFORMATION
  Report Type: Report from Study
  Country: CA (occurrence: CA)
  Receive Date: 20250711
  Receipt Date: 20251007
  Transmission Date: 20260117
  Serious: Yes (Hospitalization)
  Sender: ROCHE
  Company Number: CA-ROCHE-10000224319

PATIENT
  Age: 6 Year
  Sex: Male

DRUGS (13)
  1. MYCOPHENOLATE MOFETIL [Suspect]
     Active Substance: MYCOPHENOLATE MOFETIL
     Indication: Product used for unknown indication
     Route: 048
     Dates: start: 202002, end: 202007
  2. ACTEMRA ACTPEN [Suspect]
     Active Substance: TOCILIZUMAB
     Indication: Parophthalmia
     Route: 058
     Dates: end: 2025
  3. ACTEMRA ACTPEN [Suspect]
     Active Substance: TOCILIZUMAB
     Indication: Central nervous system inflammation
  4. ACTEMRA ACTPEN [Suspect]
     Active Substance: TOCILIZUMAB
     Indication: Systemic inflammatory response syndrome
  5. BARICITINIB [Concomitant]
     Active Substance: BARICITINIB
     Indication: Product used for unknown indication
  6. CALCIUM [Concomitant]
     Active Substance: CALCIUM
     Indication: Product used for unknown indication
  7. DABIGATRAN [Concomitant]
     Active Substance: DABIGATRAN
     Indication: Product used for unknown indication
  8. DEXAMETHASONE [Concomitant]
     Active Substance: DEXAMETHASONE
     Indication: Product used for unknown indication
  9. OMEPRAZOLE [Concomitant]
     Active Substance: OMEPRAZOLE
     Indication: Product used for unknown indication
  10. INFLIXIMAB [Concomitant]
     Active Substance: INFLIXIMAB
     Indication: Product used for unknown indication
  11. ADALIMUMAB [Concomitant]
     Active Substance: ADALIMUMAB
  12. ANAKINRA [Concomitant]
     Active Substance: ANAKINRA
  13. VITAMIN D [Concomitant]
     Active Substance: VITAMIN D NOS

REACTIONS (32)
  - Optic neuritis [Unknown]
  - Cerebral disorder [Unknown]
  - Parotitis [Unknown]
  - Abdominal pain [Unknown]
  - Upper respiratory tract infection [Unknown]
  - Arthralgia [Unknown]
  - Peripheral vein thrombosis [Unknown]
  - Pain in extremity [Unknown]
  - Ill-defined disorder [Unknown]
  - Eye swelling [Unknown]
  - Ocular hyperaemia [Unknown]
  - Iridocyclitis [Unknown]
  - Pyrexia [Unknown]
  - Vomiting [Unknown]
  - Photophobia [Unknown]
  - Depressed level of consciousness [Unknown]
  - Tachycardia [Unknown]
  - Cardiac disorder [Unknown]
  - Headache [Unknown]
  - Inflammatory marker increased [Unknown]
  - Obstructive sleep apnoea syndrome [Unknown]
  - Weight increased [Unknown]
  - Toxicity to various agents [Unknown]
  - Speech disorder [Unknown]
  - Feeding disorder [Unknown]
  - Movement disorder [Unknown]
  - Treatment failure [Unknown]
  - Blood disorder [Unknown]
  - Off label use [Unknown]
  - Eye pain [Unknown]
  - Psychogenic seizure [Unknown]
  - Drug ineffective [Unknown]

NARRATIVE: CASE EVENT DATE: 20230201
